FAERS Safety Report 5765711-4 (Version None)
Quarter: 2008Q2

REPORT INFORMATION
  Report Type: 
  Country: None (occurrence: None)
  Receive Date: 20080611
  Receipt Date: 20080603
  Transmission Date: 20081010
  Serious: Yes (Disabling)
  Sender: FDA-Public Use
  Company Number: PHHY2008CA08834

PATIENT
  Sex: Male

DRUGS (3)
  1. GLEEVEC [Suspect]
     Indication: GASTROINTESTINAL STROMAL TUMOUR
     Dosage: 400 MG
  2. GLEEVEC [Suspect]
     Dosage: 600 MG/DAY
     Dates: start: 20030405, end: 20040715
  3. GLEEVEC [Suspect]
     Dosage: 600 MG
     Dates: start: 20050201

REACTIONS (4)
  - DYSARTHRIA [None]
  - DYSGRAPHIA [None]
  - GAIT DISTURBANCE [None]
  - PARKINSON'S DISEASE [None]
